FAERS Safety Report 23045312 (Version 2)
Quarter: 2023Q4

REPORT INFORMATION
  Report Type: Spontaneous
  Country: US (occurrence: US)
  Receive Date: 20231009
  Receipt Date: 20231226
  Transmission Date: 20240110
  Serious: No
  Sender: FDA-Public Use
  Company Number: US-BIOVITRUM-2023-US-015503

PATIENT
  Age: 3 Month
  Sex: Female

DRUGS (2)
  1. SYNAGIS [Suspect]
     Active Substance: PALIVIZUMAB
     Indication: Premature baby
     Dosage: 33.61 MG, EVERY 28DAYS TO 30DAYS
     Route: 030
     Dates: start: 20230805
  2. SYNAGIS [Suspect]
     Active Substance: PALIVIZUMAB
     Dosage: EVERY 28 DAYS TO 30DAYS
     Route: 030
     Dates: start: 20231110

REACTIONS (3)
  - Illness [Unknown]
  - Nasal congestion [Unknown]
  - Cough [Unknown]

NARRATIVE: CASE EVENT DATE: 20230925
